FAERS Safety Report 7483236-5 (Version None)
Quarter: 2011Q2

REPORT INFORMATION
  Report Type: 
  Country: None (occurrence: None)
  Receive Date: 20110516
  Receipt Date: 20110503
  Transmission Date: 20111010
  Serious: Yes (Hospitalization, Other)
  Sender: FDA-Public Use
  Company Number: IT-PAR PHARMACEUTICAL, INC-2011SCPR002970

PATIENT
  Age: 33 Day
  Sex: Female
  Weight: 5.6 kg

DRUGS (3)
  1. PROPRANOLOL HCL [Suspect]
     Indication: SUPRAVENTRICULAR TACHYCARDIA
     Dosage: 0.5 MG/KG
     Route: 048
  2. VERAPAMIL [Suspect]
     Indication: SUPRAVENTRICULAR TACHYCARDIA
     Dosage: 0.1 MG/KG
     Route: 042
  3. ADENOSINE [Concomitant]
     Indication: SUPRAVENTRICULAR TACHYCARDIA
     Dosage: 0.2 MG/KG
     Route: 042

REACTIONS (9)
  - BLOOD CREATININE INCREASED [None]
  - HYPOXIA [None]
  - TOXICITY TO VARIOUS AGENTS [None]
  - ANURIA [None]
  - LOW CARDIAC OUTPUT SYNDROME [None]
  - ARRHYTHMIA [None]
  - HYPERKALAEMIA [None]
  - CIRCULATORY COLLAPSE [None]
  - PNEUMONIA [None]
